FAERS Safety Report 5842645-8 (Version None)
Quarter: 2008Q3

REPORT INFORMATION
  Report Type: 
  Country: None (occurrence: None)
  Receive Date: 20080812
  Receipt Date: 20080731
  Transmission Date: 20090109
  Serious: Yes (Other)
  Sender: FDA-Public Use
  Company Number: CH-PFIZER INC-2008066180

PATIENT
  Age: 62 Year
  Sex: Male

DRUGS (4)
  1. VIRACEPT [Suspect]
     Indication: HIV INFECTION
     Dosage: DAILY DOSE:3750MG
     Route: 048
  2. INVIRASE [Interacting]
     Indication: HIV INFECTION
     Dosage: DAILY DOSE:2400MG
     Route: 048
  3. LEVITRA [Interacting]
     Indication: HIV INFECTION
     Dosage: DAILY DOSE:10MG
     Route: 048
     Dates: start: 20080101, end: 20080101
  4. NORVIR [Interacting]
     Indication: HIV INFECTION
     Dosage: DAILY DOSE:200MG
     Route: 048

REACTIONS (2)
  - DRUG INTERACTION [None]
  - PAIN IN EXTREMITY [None]
